FAERS Safety Report 11414096 (Version 1)
Quarter: 2015Q3

REPORT INFORMATION
  Report Type: Spontaneous
  Country: TR (occurrence: TR)
  Receive Date: 20150824
  Receipt Date: 20150824
  Transmission Date: 20151125
  Serious: Yes (Other)
  Sender: FDA-Public Use
  Company Number: TR-MYLANLABS-2015M1028152

PATIENT

DRUGS (3)
  1. VALPROATE SEMISODIUM [Suspect]
     Active Substance: DIVALPROEX SODIUM
     Dosage: FURTHER INCREASED TO 1500 MG/DAY FOR 2 YEARS
     Route: 065
  2. VALPROATE SEMISODIUM [Suspect]
     Active Substance: DIVALPROEX SODIUM
     Dosage: INCREASED TO 1000 MG/DAY FOR 4 MONTHS, FURTHER INCREASED
     Route: 065
  3. VALPROATE SEMISODIUM [Suspect]
     Active Substance: DIVALPROEX SODIUM
     Indication: JUVENILE MYOCLONIC EPILEPSY
     Dosage: 500 MG/DAY FOR 6 YEARS, INCREASED
     Route: 065

REACTIONS (3)
  - Oligospermia [Recovered/Resolved]
  - Azoospermia [Recovered/Resolved]
  - Asthenospermia [Recovered/Resolved]
